FAERS Safety Report 5967677-0 (Version None)
Quarter: 2008Q4

REPORT INFORMATION
  Report Type: 
  Country: None (occurrence: None)
  Receive Date: 20081126
  Receipt Date: 20081121
  Transmission Date: 20090506
  Serious: Yes (Life-Threatening, Hospitalization, Other)
  Sender: FDA-Public Use
  Company Number: PHHY2008IE09694

PATIENT
  Sex: Male

DRUGS (3)
  1. CLOZARIL [Suspect]
     Indication: SCHIZOPHRENIA
     Dosage: 400 MG DAILY
     Route: 048
  2. DIAZEPAM [Concomitant]
     Dosage: 15 MG DAILY
     Route: 048
  3. KWELLS [Concomitant]
     Dosage: 3 DAILY
     Route: 048

REACTIONS (10)
  - ABDOMINAL COMPARTMENT SYNDROME [None]
  - ACUTE ABDOMEN [None]
  - CONSTIPATION [None]
  - ENDOTRACHEAL INTUBATION [None]
  - FAECALOMA [None]
  - INFECTION [None]
  - INTESTINAL OBSTRUCTION [None]
  - NEUTROPHIL COUNT INCREASED [None]
  - WEIGHT INCREASED [None]
  - WHITE BLOOD CELL COUNT INCREASED [None]
